FAERS Safety Report 24286946 (Version 1)
Quarter: 2024Q3

REPORT INFORMATION
  Report Type: Spontaneous
  Country: CA (occurrence: CA)
  Receive Date: 20240905
  Receipt Date: 20240905
  Transmission Date: 20241016
  Serious: Yes (Hospitalization)
  Sender: COVIS PHARMA
  Company Number: CA-AstraZeneca-2022A358677

PATIENT
  Age: 52 Year
  Sex: Female

DRUGS (78)
  1. ACLIDINIUM BROMIDE [Suspect]
     Active Substance: ACLIDINIUM BROMIDE
  2. ACLIDINIUM BROMIDE\FORMOTEROL FUMARATE [Suspect]
     Active Substance: ACLIDINIUM BROMIDE\FORMOTEROL FUMARATE
  3. OMNARIS [Suspect]
     Active Substance: CICLESONIDE
     Route: 045
  4. QUETIAPINE [Suspect]
     Active Substance: QUETIAPINE
     Indication: Psychotic disorder
     Route: 048
  5. QUETIAPINE FUMARATE [Suspect]
     Active Substance: QUETIAPINE FUMARATE
  6. ACETAMINOPHEN [Suspect]
     Active Substance: ACETAMINOPHEN
     Indication: Pain in extremity
  7. CLONAZEPAM [Suspect]
     Active Substance: CLONAZEPAM
     Indication: Hypomania
     Dosage: 3.0MG UNKNOWN
  8. DIAZEPAM [Suspect]
     Active Substance: DIAZEPAM
     Indication: Depression
     Route: 065
  9. DIAZEPAM [Suspect]
     Active Substance: DIAZEPAM
     Route: 065
  10. DIAZEPAM [Suspect]
     Active Substance: DIAZEPAM
     Route: 048
  11. DIAZEPAM [Suspect]
     Active Substance: DIAZEPAM
     Route: 048
  12. DIAZEPAM [Suspect]
     Active Substance: DIAZEPAM
     Route: 048
  13. DIAZEPAM [Suspect]
     Active Substance: DIAZEPAM
     Route: 048
  14. DIAZEPAM [Suspect]
     Active Substance: DIAZEPAM
     Route: 048
  15. DIAZEPAM [Suspect]
     Active Substance: DIAZEPAM
     Route: 048
  16. DIAZEPAM [Suspect]
     Active Substance: DIAZEPAM
     Route: 048
  17. DIAZEPAM [Suspect]
     Active Substance: DIAZEPAM
     Route: 048
  18. DIAZEPAM [Suspect]
     Active Substance: DIAZEPAM
     Route: 048
  19. DIAZEPAM [Suspect]
     Active Substance: DIAZEPAM
     Route: 048
  20. DIAZEPAM [Suspect]
     Active Substance: DIAZEPAM
  21. DIAZEPAM [Suspect]
     Active Substance: DIAZEPAM
  22. PROCYCLIDINE HYDROCHLORIDE [Suspect]
     Active Substance: PROCYCLIDINE HYDROCHLORIDE
     Indication: Prophylaxis
  23. PROCYCLIDINE HYDROCHLORIDE [Suspect]
     Active Substance: PROCYCLIDINE HYDROCHLORIDE
     Indication: Musculoskeletal stiffness
  24. PROCYCLIDINE HYDROCHLORIDE [Suspect]
     Active Substance: PROCYCLIDINE HYDROCHLORIDE
     Route: 048
  25. PROCYCLIDINE HYDROCHLORIDE [Suspect]
     Active Substance: PROCYCLIDINE HYDROCHLORIDE
     Route: 048
  26. RISPERIDONE [Suspect]
     Active Substance: RISPERIDONE
     Indication: Psychotic disorder
     Route: 048
  27. ZYPREXA [Suspect]
     Active Substance: OLANZAPINE
     Indication: Psychotic disorder
     Route: 048
  28. ZYPREXA [Suspect]
     Active Substance: OLANZAPINE
     Route: 048
  29. ZYPREXA [Suspect]
     Active Substance: OLANZAPINE
     Route: 048
  30. ZYPREXA [Suspect]
     Active Substance: OLANZAPINE
     Route: 048
  31. TRAZODONE [Suspect]
     Active Substance: TRAZODONE HYDROCHLORIDE
     Indication: Depression
     Route: 048
  32. TRAZODONE [Suspect]
     Active Substance: TRAZODONE HYDROCHLORIDE
     Route: 048
  33. TEGRETOL [Suspect]
     Active Substance: CARBAMAZEPINE
     Indication: Hypomania
     Route: 048
  34. TEGRETOL [Suspect]
     Active Substance: CARBAMAZEPINE
     Route: 048
  35. TEGRETOL [Suspect]
     Active Substance: CARBAMAZEPINE
     Route: 048
  36. ACETAMINOPHEN\DIPHENHYDRAMINE HYDROCHLORIDE [Suspect]
     Active Substance: ACETAMINOPHEN\DIPHENHYDRAMINE HYDROCHLORIDE
  37. APTIVUS [Suspect]
     Active Substance: TIPRANAVIR
     Indication: HIV infection
     Route: 048
  38. ATROVENT [Suspect]
     Active Substance: IPRATROPIUM BROMIDE
  39. BREO ELLIPTA [Suspect]
     Active Substance: FLUTICASONE FUROATE\VILANTEROL TRIFENATATE
     Route: 055
  40. BUDESONIDE\FORMOTEROL FUMARATE [Suspect]
     Active Substance: BUDESONIDE\FORMOTEROL FUMARATE
  41. CIPROFLOXACIN HYDROCHLORIDE [Suspect]
     Active Substance: CIPROFLOXACIN HYDROCHLORIDE
  42. GLYCOPYRROLATE [Suspect]
     Active Substance: GLYCOPYRROLATE
  43. MEPOLIZUMAB [Suspect]
     Active Substance: MEPOLIZUMAB
  44. MOXIFLOXACIN HYDROCHLORIDE [Suspect]
     Active Substance: MOXIFLOXACIN HYDROCHLORIDE\MOXIFLOXACIN HYDROCHLORIDE MONOHYDRATE
  45. NASONEX [Suspect]
     Active Substance: MOMETASONE FUROATE
  46. NUCALA [Suspect]
     Active Substance: MEPOLIZUMAB
  47. OLODATEROL HYDROCHLORIDE\TIOTROPIUM BROMIDE MONOHYDRATE [Suspect]
     Active Substance: OLODATEROL HYDROCHLORIDE\TIOTROPIUM BROMIDE MONOHYDRATE
  48. AZITHROMYCIN ANHYDROUS [Suspect]
     Active Substance: AZITHROMYCIN ANHYDROUS
  49. PREDNISONE [Suspect]
     Active Substance: PREDNISONE
  50. ALBUTEROL [Suspect]
     Active Substance: ALBUTEROL
     Indication: Psychotic disorder
  51. SINGULAIR [Suspect]
     Active Substance: MONTELUKAST SODIUM
  52. TIOTROPIUM BROMIDE MONOHYDRATE [Suspect]
     Active Substance: TIOTROPIUM BROMIDE MONOHYDRATE
  53. TIPRANAVIR [Suspect]
     Active Substance: TIPRANAVIR
  54. GLYCOPYRRONIUM\INDACATEROL [Suspect]
     Active Substance: GLYCOPYRRONIUM\INDACATEROL
  55. UMECLIDINIUM BROMIDE [Suspect]
     Active Substance: UMECLIDINIUM BROMIDE
     Indication: Depression
  56. UMECLIDINIUM BROMIDE\VILANTEROL TRIFENATATE [Suspect]
     Active Substance: UMECLIDINIUM BROMIDE\VILANTEROL TRIFENATATE
  57. DIVALPROEX SODIUM [Suspect]
     Active Substance: DIVALPROEX SODIUM
  58. ZENHALE [Suspect]
     Active Substance: FORMOTEROL FUMARATE\MOMETASONE FUROATE
  59. PROCYCLIDINE HYDROCHLORIDE [Suspect]
     Active Substance: PROCYCLIDINE HYDROCHLORIDE
  60. IMODIUM [Concomitant]
     Active Substance: LOPERAMIDE HYDROCHLORIDE
  61. KALETRA [Concomitant]
     Active Substance: LOPINAVIR\RITONAVIR
  62. LACTULOSE/MINERAL OIL [Concomitant]
  63. LAMIVUDINE [Concomitant]
     Active Substance: LAMIVUDINE
  64. BISACODYL [Concomitant]
     Active Substance: BISACODYL
  65. CALCIUM CARBONATE [Concomitant]
     Active Substance: CALCIUM CARBONATE
     Route: 065
  66. CHLORAL HYDRATE [Concomitant]
     Active Substance: CHLORAL HYDRATE
  67. LITHIUM [Concomitant]
     Active Substance: LITHIUM
     Route: 065
  68. LYCOPENE A PLUS [Concomitant]
     Route: 065
  69. NYSTATIN [Concomitant]
     Active Substance: NYSTATIN
  70. SERTRALINE [Concomitant]
     Active Substance: SERTRALINE HYDROCHLORIDE
     Route: 065
  71. ENFUVIRTIDE [Concomitant]
     Active Substance: ENFUVIRTIDE
     Route: 048
  72. ABACAVIR [Concomitant]
     Active Substance: ABACAVIR
  73. ABACAVIR SULFATE [Concomitant]
     Active Substance: ABACAVIR SULFATE
  74. ACRIVASTINE [Concomitant]
     Active Substance: ACRIVASTINE
  75. ATOVAQUONE\PROGUANIL HYDROCHLORIDE [Concomitant]
     Active Substance: ATOVAQUONE\PROGUANIL HYDROCHLORIDE
  76. BENADRYL [Concomitant]
     Active Substance: DIPHENHYDRAMINE HYDROCHLORIDE
  77. ENFUVIRTIDE [Concomitant]
     Active Substance: ENFUVIRTIDE
  78. LACTULOSE [Concomitant]
     Active Substance: LACTULOSE

REACTIONS (24)
  - Asthma-chronic obstructive pulmonary disease overlap syndrome [Recovered/Resolved]
  - Blood bilirubin increased [Unknown]
  - Bronchiectasis [Recovered/Resolved]
  - Cardiac murmur [Recovered/Resolved]
  - Cholelithiasis [Recovered/Resolved]
  - Chronic obstructive pulmonary disease [Recovered/Resolved]
  - Condition aggravated [Recovered/Resolved]
  - Gastrooesophageal reflux disease [Recovered/Resolved]
  - Hepatic enzyme increased [Recovered/Resolved]
  - Hepatotoxicity [Recovered/Resolved]
  - Hypomania [Recovered/Resolved]
  - Jaundice cholestatic [Recovered/Resolved]
  - Lung neoplasm malignant [Recovered/Resolved]
  - Nasal polyps [Recovered/Resolved]
  - Nausea [Recovered/Resolved]
  - Oedema peripheral [Recovered/Resolved]
  - Pneumonia [Recovered/Resolved]
  - Psychotic disorder [Recovered/Resolved]
  - Rhinitis allergic [Recovered/Resolved]
  - Sarcoidosis [Recovered/Resolved]
  - Schizophrenia [Recovered/Resolved]
  - Total lung capacity increased [Recovered/Resolved]
  - Vomiting [Recovered/Resolved]
  - Wheezing [Recovered/Resolved]
